FAERS Safety Report 6528143-7 (Version None)
Quarter: 2010Q1

REPORT INFORMATION
  Report Type: 
  Country: None (occurrence: None)
  Receive Date: 20100106
  Receipt Date: 20091229
  Transmission Date: 20100710
  Serious: Yes (Other)
  Sender: FDA-Public Use
  Company Number: TW-BAYER-200941665GPV

PATIENT
  Age: 28 Year
  Sex: Female
  Weight: 70 kg

DRUGS (1)
  1. YASMIN [Suspect]
     Indication: CONTRACEPTION
     Route: 048
     Dates: start: 20091017, end: 20091121

REACTIONS (1)
  - ABORTION SPONTANEOUS [None]
